FAERS Safety Report 4567900-3 (Version None)
Quarter: 2005Q1

REPORT INFORMATION
  Report Type: 
  Country: None (occurrence: None)
  Receive Date: 20050202
  Receipt Date: 20040920
  Transmission Date: 20050727
  Serious: Yes (Hospitalization, Other)
  Sender: FDA-Public Use
  Company Number: PHEH2004US10114

PATIENT
  Age: 45 Year
  Sex: Male
  Weight: 84 kg

DRUGS (10)
  1. ZYPREXA [Concomitant]
     Indication: PSYCHOTIC DISORDER
     Dosage: 10 MG, BID
     Dates: start: 20040128
  2. SEROQUEL [Concomitant]
     Indication: PSYCHOTIC DISORDER
     Dosage: 25 MG, QD
     Route: 048
     Dates: start: 20040128, end: 20040920
  3. SEROQUEL [Concomitant]
     Dosage: 200 MG, BID
     Route: 048
     Dates: start: 20040920
  4. DEPAKOTE [Concomitant]
     Dosage: 1500 MG, QD
  5. ALLOPURINOL [Concomitant]
     Dosage: 100 MG, QD
     Route: 048
  6. METOPROLOL [Concomitant]
     Dosage: 50 MG, QD
     Route: 048
  7. COLACE [Concomitant]
     Dosage: 100 MG, QD
  8. SYNTHROID [Concomitant]
     Dosage: 50 MG, UNK
  9. CLOZARIL [Suspect]
     Indication: SCHIZOPHRENIA
     Dosage: 600 MG, QD
     Route: 048
     Dates: start: 20020101, end: 20040701
  10. CLOZARIL [Suspect]
     Dosage: 200 MG, BID
     Route: 048
     Dates: start: 20040101

REACTIONS (14)
  - BLOOD CREATINE PHOSPHOKINASE INCREASED [None]
  - CLOSTRIDIUM COLITIS [None]
  - CONFUSIONAL STATE [None]
  - DEHYDRATION [None]
  - INTUBATION [None]
  - LOSS OF CONSCIOUSNESS [None]
  - MUSCLE RIGIDITY [None]
  - NEUROLEPTIC MALIGNANT SYNDROME [None]
  - PNEUMONIA ASPIRATION [None]
  - PSYCHOTIC DISORDER [None]
  - RENAL FAILURE ACUTE [None]
  - RESPIRATORY FAILURE [None]
  - RHABDOMYOLYSIS [None]
  - TACHYCARDIA [None]
